FAERS Safety Report 9163150 (Version 1)
Quarter: 2013Q1

REPORT INFORMATION
  Report Type: Spontaneous
  Country: GB (occurrence: None)
  Receive Date: 20130215
  Receipt Date: 20130215
  Transmission Date: 20140127
  Serious: Yes (Life-Threatening)
  Sender: FDA-Public Use
  Company Number: GER/UKI/13/0027956

PATIENT
  Age: 28 Year
  Sex: Male

DRUGS (1)
  1. OLANZAPINE (OLANZAPINE) [Suspect]
     Indication: BIPOLAR DISORDER
     Dates: start: 2003, end: 2008

REACTIONS (1)
  - Aplastic anaemia [None]
